FAERS Safety Report 4330711-8 (Version None)
Quarter: 2004Q1

REPORT INFORMATION
  Report Type: 
  Country: None (occurrence: None)
  Receive Date: 20040329
  Receipt Date: 20040314
  Transmission Date: 20041129
  Serious: Yes (Other)
  Sender: FDA-Public Use
  Company Number: SUSI-2004-00178

PATIENT
  Age: 11 Year
  Sex: Male

DRUGS (3)
  1. ADDERALL XR 10 [Suspect]
     Indication: ATTENTION DEFICIT/HYPERACTIVITY DISORDER
     Dosage: 10 MG, 1X/DAY:QD
     Dates: start: 20040310, end: 20040314
  2. GUANFACINE HCL [Concomitant]
  3. MULTI-VITAMIN [Concomitant]

REACTIONS (5)
  - AGITATION [None]
  - ANOREXIA [None]
  - DYSPNOEA [None]
  - MEDICATION TAMPERING [None]
  - PALLOR [None]
